FAERS Safety Report 8217982-2 (Version None)
Quarter: 2012Q1

REPORT INFORMATION
  Report Type: 
  Country: None (occurrence: None)
  Receive Date: 20120319
  Receipt Date: 20120307
  Transmission Date: 20120608
  Serious: Yes (Hospitalization)
  Sender: FDA-Public Use
  Company Number: JP-PFIZER INC-2012061466

PATIENT
  Sex: Male

DRUGS (2)
  1. RHEUMATREX [Concomitant]
     Dosage: 4 MG/WEEK
     Route: 048
  2. LYRICA [Suspect]
     Dosage: 75 MG, 2X/DAY
     Route: 048

REACTIONS (1)
  - PNEUMONIA [None]
